FAERS Safety Report 6201188-2 (Version None)
Quarter: 2009Q2

REPORT INFORMATION
  Report Type: 
  Country: None (occurrence: None)
  Receive Date: 20090526
  Receipt Date: 20090521
  Transmission Date: 20091009
  Serious: Yes (Other)
  Sender: FDA-Public Use
  Company Number: FR-JNJFOC-20090504394

PATIENT
  Age: 66 Year
  Sex: Male

DRUGS (9)
  1. OFLOXACIN [Suspect]
     Indication: OSTEITIS
     Route: 048
  2. RIFADIN [Suspect]
     Indication: OSTEITIS
     Route: 048
  3. VANCOMYCIN [Suspect]
     Indication: OSTEITIS
     Route: 042
  4. INEGY [Concomitant]
     Indication: CARDIOVASCULAR DISORDER
     Route: 065
  5. PLAVIX [Concomitant]
     Indication: CARDIOVASCULAR DISORDER
     Route: 048
  6. SOTALEX [Concomitant]
     Indication: CARDIOVASCULAR DISORDER
     Route: 065
  7. CARDEGIC [Concomitant]
     Indication: CARDIOVASCULAR DISORDER
     Route: 065
  8. MICARDIS [Concomitant]
     Indication: CARDIOVASCULAR DISORDER
     Route: 048
  9. LERCAN 10 [Concomitant]
     Indication: CARDIOVASCULAR DISORDER
     Route: 048

REACTIONS (1)
  - DRUG RASH WITH EOSINOPHILIA AND SYSTEMIC SYMPTOMS [None]
